FAERS Safety Report 9830975 (Version 1)
Quarter: 2014Q1

REPORT INFORMATION
  Report Type: Spontaneous
  Country: GB (occurrence: GB)
  Receive Date: 20140120
  Receipt Date: 20140120
  Transmission Date: 20141002
  Serious: Yes (Other)
  Sender: FDA-Public Use
  Company Number: CHPA2014GB001025

PATIENT
  Sex: Female

DRUGS (2)
  1. LAMISIL [Suspect]
     Indication: TINEA PEDIS
     Dosage: UNK
     Dates: start: 20140113
  2. LAMISIL [Suspect]
     Dosage: UNK
     Route: 061

REACTIONS (1)
  - Local swelling [Recovered/Resolved]
